FAERS Safety Report 9031421 (Version 2)
Quarter: 2013Q1

REPORT INFORMATION
  Report Type: Spontaneous
  Country: FR (occurrence: FR)
  Receive Date: 20130124
  Receipt Date: 20130201
  Transmission Date: 20140127
  Serious: Yes (Hospitalization)
  Sender: FDA-Public Use
  Company Number: FR-UCBSA-076182

PATIENT
  Age: 52 Year
  Sex: Male

DRUGS (15)
  1. KEPPRA [Suspect]
     Indication: EPILEPSY
     Route: 048
     Dates: start: 20121120, end: 20121214
  2. BECILAN [Concomitant]
     Dosage: 3 TABLETS DAILY
  3. BEVITINE [Concomitant]
     Dosage: 2 TABLETS DAILY
  4. LOXAPAC [Concomitant]
     Dosage: 75 DROPS DAILY
     Dates: start: 20121116, end: 20121206
  5. RISPERDAL [Concomitant]
     Dosage: 1 MG DAILY
     Dates: start: 20121116, end: 20121125
  6. SERESTA [Concomitant]
     Dates: end: 20121126
  7. URBANYL [Concomitant]
     Dosage: 10 MG DAILY
     Dates: start: 20121120, end: 20121122
  8. XATRAL [Concomitant]
     Dosage: 10 MG TABLETS, DURING ALL HOSPITAL STAY
     Dates: start: 20121115, end: 2012
  9. IMOVANE [Concomitant]
     Dosage: 7.5MG DAILY
     Dates: start: 20121124
  10. TRANXENE [Concomitant]
     Dosage: 150MG DAILY
     Dates: start: 20121126
  11. ZYPREXA [Concomitant]
     Dosage: 25MG DAILY
     Dates: start: 20121126, end: 20121205
  12. TERCIAN [Concomitant]
     Dosage: FORM: DROPS
     Dates: start: 20121213
  13. CLOPIXOL [Concomitant]
     Dates: start: 20121213
  14. ALKONATREM [Concomitant]
     Dates: start: 20121130
  15. ATARAX [Concomitant]
     Dosage: 25MG
     Dates: start: 20121206

REACTIONS (1)
  - Delirium [Recovered/Resolved]
